FAERS Safety Report 11146853 (Version 3)
Quarter: 2015Q2

REPORT INFORMATION
  Report Type: Spontaneous
  Country: US (occurrence: US)
  Receive Date: 20150528
  Receipt Date: 20150615
  Transmission Date: 20150821
  Serious: Yes (Hospitalization)
  Sender: FDA-Public Use
  Company Number: US-ACTELION-A-US2015-118475

PATIENT
  Age: 76 Year
  Sex: Female

DRUGS (3)
  1. VELETRI [Suspect]
     Active Substance: EPOPROSTENOL
     Indication: PULMONARY ARTERIAL HYPERTENSION
     Dosage: 19 NG/KG, PER MIN
     Route: 042
  2. ADCIRCA [Concomitant]
     Active Substance: TADALAFIL
  3. TRACLEER [Suspect]
     Active Substance: BOSENTAN\BOSENTAN MONOHYDRATE
     Indication: PULMONARY ARTERIAL HYPERTENSION
     Dosage: UNK
     Route: 048

REACTIONS (9)
  - Device breakage [Not Recovered/Not Resolved]
  - Catheter placement [Unknown]
  - Pollakiuria [Unknown]
  - Weight decreased [Unknown]
  - Catheter site infection [Not Recovered/Not Resolved]
  - Pyrexia [Unknown]
  - Sepsis [Unknown]
  - Incontinence [Unknown]
  - Chills [Unknown]

NARRATIVE: CASE EVENT DATE: 20150519
